FAERS Safety Report 10994660 (Version 2)
Quarter: 2015Q3

REPORT INFORMATION
  Report Type: Spontaneous
  Country: IT (occurrence: IT)
  Receive Date: 20150407
  Receipt Date: 20150811
  Transmission Date: 20151125
  Serious: Yes (Hospitalization)
  Sender: FDA-Public Use
  Company Number: IT-SA-2015SA042734

PATIENT
  Age: 33 Year
  Sex: Male
  Weight: 72 kg

DRUGS (2)
  1. STILNOX [Suspect]
     Active Substance: ZOLPIDEM TARTRATE
     Route: 048
     Dates: start: 20110408, end: 20140908
  2. TRIAZOLAM. [Suspect]
     Active Substance: TRIAZOLAM
     Dosage: TAKEN TO: 18 MONTHS
     Route: 048
     Dates: start: 20130408

REACTIONS (1)
  - Drug dependence [Unknown]
